FAERS Safety Report 8219809-1 (Version None)
Quarter: 2012Q1

REPORT INFORMATION
  Report Type: 
  Country: None (occurrence: None)
  Receive Date: 20120319
  Receipt Date: 20120314
  Transmission Date: 20120608
  Serious: Yes (Hospitalization)
  Sender: FDA-Public Use
  Company Number: DK-PFIZER INC-2012044852

PATIENT
  Age: 78 Year
  Sex: Female
  Weight: 64 kg

DRUGS (17)
  1. PREDNISONE [Suspect]
     Indication: B-CELL LYMPHOMA
     Dosage: 100 MG, UNK
     Route: 048
     Dates: start: 20120123
  2. RITUXIMAB [Suspect]
     Dosage: 600 MG, UNK
     Route: 042
     Dates: start: 20120218
  3. CYCLOPHOSPHAMIDE [Suspect]
     Dosage: 1275 MG, UNK
     Route: 042
     Dates: start: 20120213
  4. MIRTAZAPINE [Concomitant]
     Dosage: 15 MG, UNK
     Route: 048
     Dates: start: 20111219
  5. DOXORUBICIN HCL [Suspect]
     Dosage: 85 MG, UNK
     Route: 042
     Dates: start: 20120213
  6. DOXORUBICIN HCL [Suspect]
     Indication: B-CELL LYMPHOMA
     Dosage: 90 MG, UNK
     Route: 042
     Dates: start: 20120123
  7. VINCRISTINE [Suspect]
     Dosage: 2 MG
     Route: 042
     Dates: start: 20120213
  8. NEUPOGEN [Suspect]
     Indication: B-CELL LYMPHOMA
     Dosage: 6 MG, UNK
     Route: 058
     Dates: start: 20120128
  9. RITUXIMAB [Suspect]
     Indication: B-CELL LYMPHOMA
     Dosage: 700 MG, UNK
     Route: 042
     Dates: start: 20120123
  10. PANTOPRAZOLE [Concomitant]
     Dosage: 40 MG, UNK
     Route: 048
     Dates: start: 20120105
  11. VENLAFAXINE HYDROCHLORIDE [Concomitant]
     Dosage: 75 MG, UNK
     Route: 048
     Dates: start: 20120105
  12. PREDNISONE [Suspect]
     Dosage: 100 MG, UNK
     Route: 048
     Dates: start: 20120213
  13. CYCLOPHOSPHAMIDE [Suspect]
     Indication: B-CELL LYMPHOMA
     Dosage: 1350 MG, UNK
     Route: 042
     Dates: start: 20120123
  14. NEUPOGEN [Suspect]
     Dosage: 6 MG, UNK
     Route: 058
     Dates: start: 20120214
  15. TENORETIC 100 [Concomitant]
     Indication: HYPERTENSION
     Dosage: UNK
     Route: 048
  16. VINCRISTINE [Suspect]
     Indication: B-CELL LYMPHOMA
     Dosage: 42 MG, UNK
     Route: 042
     Dates: start: 20120123
  17. SIMVASTATIN [Concomitant]
     Indication: BLOOD CHOLESTEROL INCREASED
     Dosage: 40 MG, UNK
     Route: 048
     Dates: start: 20100917

REACTIONS (2)
  - WEIGHT DECREASED [None]
  - ORAL CANDIDIASIS [None]
